FAERS Safety Report 8968535 (Version 1)
Quarter: 2012Q4

REPORT INFORMATION
  Report Type: 
  Country: GB (occurrence: GB)
  Receive Date: 20121217
  Receipt Date: 20121217
  Transmission Date: 20130627
  Serious: Yes (Other)
  Sender: FDA-Public Use
  Company Number: GB-TEVA-375514ISR

PATIENT
  Age: 38 Year
  Sex: Male

DRUGS (1)
  1. METRONIDAZOLE [Suspect]
     Indication: INFECTION
     Dosage: 1200 Milligram Daily;
     Route: 048
     Dates: start: 20121126, end: 20121127

REACTIONS (5)
  - Hallucination [Recovered/Resolved]
  - Jaundice [Recovered/Resolved]
  - Dizziness [Recovering/Resolving]
  - Tremor [Recovering/Resolving]
  - Dysarthria [Recovered/Resolved]
